FAERS Safety Report 4462824-4 (Version None)
Quarter: 2004Q3

REPORT INFORMATION
  Report Type: 
  Country: None (occurrence: None)
  Receive Date: 20040927
  Receipt Date: 20040914
  Transmission Date: 20050211
  Serious: Yes (Hospitalization)
  Sender: FDA-Public Use
  Company Number: A-CH2004-07425

PATIENT
  Sex: Male

DRUGS (2)
  1. TRACLEER [Suspect]
     Indication: PULMONARY HYPERTENSION
     Dates: start: 20040101, end: 20040101
  2. TRACLEER [Suspect]
     Indication: PULMONARY HYPERTENSION
     Dates: start: 20040801

REACTIONS (2)
  - DYSPEPSIA [None]
  - HOSPITALISATION [None]
